FAERS Safety Report 5195980-3 (Version None)
Quarter: 2006Q4

REPORT INFORMATION
  Report Type: 
  Country: None (occurrence: None)
  Receive Date: 20061221
  Receipt Date: 20061114
  Transmission Date: 20070319
  Serious: Yes (Other)
  Sender: FDA-Public Use
  Company Number: LIT-023-06-USA-FU1

PATIENT
  Age: 30 Year
  Sex: Female

DRUGS (3)
  1. IMMUNE GLOBULIN (HUMAN) [Suspect]
     Indication: ASTHENIA
     Dosage: 2 MG/KG OVER 3 DAYS INTRAVENOUS
     Route: 042
  2. IMMUNE GLOBULIN (HUMAN) [Suspect]
     Indication: FACIAL PALSY
     Dosage: 2 MG/KG OVER 3 DAYS INTRAVENOUS
     Route: 042
  3. IMMUNE GLOBULIN (HUMAN) [Suspect]
     Indication: PARAESTHESIA
     Dosage: 2 MG/KG OVER 3 DAYS INTRAVENOUS
     Route: 042

REACTIONS (1)
  - VASCULITIS [None]
